FAERS Safety Report 5098883-8 (Version None)
Quarter: 2006Q3

REPORT INFORMATION
  Report Type: 
  Country: None (occurrence: None)
  Receive Date: 20060905
  Receipt Date: 20060818
  Transmission Date: 20061208
  Serious: Yes (Hospitalization)
  Sender: FDA-Public Use
  Company Number: US-CVT-061763

PATIENT
  Age: 89 Year
  Sex: Female
  Weight: 48.1 kg

DRUGS (21)
  1. RANEXA [Suspect]
     Indication: ANGINA PECTORIS
     Dosage: 500 MG, BID, ORAL
     Route: 048
     Dates: start: 20060713, end: 20060805
  2. CARDIZEM /00489701/ (DILTIAZEM) [Concomitant]
  3. COUMADIN [Concomitant]
  4. POTASSIUM /00031401/ (POTASSIUM) [Concomitant]
  5. FOSAMAX [Concomitant]
  6. LISINOPRIL /00894001/ (LISINOPRIL) [Concomitant]
  7. NITROGLYCERIN [Concomitant]
  8. IMDUR [Concomitant]
  9. LIPITOR /01326101/ (ATORVASTATIN) [Concomitant]
  10. NEXIUM [Concomitant]
  11. XANAX [Concomitant]
  12. PAXIL [Concomitant]
  13. LASIX [Concomitant]
  14. KLOR-CON [Concomitant]
  15. TOPROL-XL [Concomitant]
  16. DOSS /00080501/ (DANTRON, DOCUSATE SODIUM) [Concomitant]
  17. CENTRUM SILVER (ASCORBIC ACID, CALCIUM, MINERALS NOS, RETINOL, TOCOPHE [Concomitant]
  18. CALCIUM /00009901/ (CALCIUM CARBONATE, CALCIUM LACTOGLUCONATE) [Concomitant]
  19. MILK OF MAGNESIA TAB [Concomitant]
  20. TUMS /00108001/ (CALCIUM CARBONATE) [Concomitant]
  21. PHOSPHATES ENEMA (SODIUM PHOSPHATE, SODIUM PHOSPHATE MONOBASIC (ANHYDR [Concomitant]

REACTIONS (7)
  - ATRIAL FIBRILLATION [None]
  - ATRIOVENTRICULAR BLOCK [None]
  - CONSTIPATION [None]
  - DIZZINESS [None]
  - ELECTROCARDIOGRAM ABNORMAL [None]
  - INTESTINAL OBSTRUCTION [None]
  - TORSADE DE POINTES [None]
